FAERS Safety Report 5894601-1 (Version None)
Quarter: 2008Q3

REPORT INFORMATION
  Report Type: 
  Country: None (occurrence: None)
  Receive Date: 20080922
  Receipt Date: 20080915
  Transmission Date: 20090109
  Serious: Yes (Hospitalization)
  Sender: FDA-Public Use
  Company Number: 2008AL010529

PATIENT
  Age: 77 Year
  Sex: Female

DRUGS (2)
  1. DIGOXIN [Suspect]
     Dosage: DAILY, PO
     Route: 048
  2. COUMADIN [Concomitant]

REACTIONS (3)
  - FEELING ABNORMAL [None]
  - HEART RATE INCREASED [None]
  - NAUSEA [None]
